FAERS Safety Report 9031518 (Version 2)
Quarter: 2013Q1

REPORT INFORMATION
  Report Type: Spontaneous
  Country: JP (occurrence: JP)
  Receive Date: 20130124
  Receipt Date: 20130213
  Transmission Date: 20140127
  Serious: Yes (Other)
  Sender: FDA-Public Use
  Company Number: JP-PFIZER INC-2013020161

PATIENT
  Age: 6 Decade
  Sex: Female
  Weight: 54 kg

DRUGS (6)
  1. LEVOFOLINATE CALCIUM [Concomitant]
     Indication: RECTAL CANCER
     Dosage: 200 MG/M2, CYCLIC
     Dates: start: 200608
  2. LEVOFOLINATE CALCIUM [Concomitant]
     Dosage: 200 MG/M2
  3. 5-FU [Concomitant]
     Indication: RECTAL CANCER
     Dosage: 400 MG/M2, CYCLIC
     Route: 040
     Dates: start: 200608
  4. 5-FU [Concomitant]
     Dosage: 2400 MG/M2, D1-2
     Route: 041
     Dates: start: 200608
  5. CAMPTO [Suspect]
     Indication: RECTAL CANCER
     Dosage: 150 MG/M2, 1X/DAY
     Route: 041
     Dates: end: 200709
  6. ELPLAT [Suspect]
     Indication: RECTAL CANCER
     Dosage: 85 MG/M2, 1X/DAY
     Route: 041
     Dates: start: 200608

REACTIONS (2)
  - Neuropathy peripheral [Unknown]
  - Upper respiratory tract inflammation [Unknown]
